FAERS Safety Report 6919555-8 (Version None)
Quarter: 2010Q3

REPORT INFORMATION
  Report Type: 
  Country: None (occurrence: None)
  Receive Date: 20100811
  Receipt Date: 20100727
  Transmission Date: 20110219
  Serious: Yes (Other)
  Sender: FDA-Public Use
  Company Number: JP-PFIZER INC-2010083225

PATIENT
  Age: 80 Year
  Sex: Female

DRUGS (4)
  1. LYRICA [Suspect]
     Indication: POST HERPETIC NEURALGIA
     Dosage: 150 MG, PER DAY
     Route: 048
     Dates: start: 20100629
  2. LIPITOR [Suspect]
     Indication: HYPERLIPIDAEMIA
     Route: 048
  3. CONIEL [Suspect]
     Dosage: UNK
  4. MOBIC [Suspect]
     Dosage: UNK

REACTIONS (2)
  - CREATININE RENAL CLEARANCE DECREASED [None]
  - DIZZINESS [None]
